FAERS Safety Report 10477653 (Version 1)
Quarter: 2014Q3

REPORT INFORMATION
  Report Type: Spontaneous
  Country: US (occurrence: None)
  Receive Date: 20140925
  Receipt Date: 20140925
  Transmission Date: 20150326
  Serious: Yes (Hospitalization)
  Sender: FDA-Public Use
  Company Number: None

PATIENT
  Age: 3 Year
  Sex: Male
  Weight: 17.1 kg

DRUGS (2)
  1. MELPHALAN [Suspect]
     Active Substance: MELPHALAN
     Dates: end: 20140901
  2. BUSULFAN [Suspect]
     Active Substance: BUSULFAN
     Dates: end: 20140830

REACTIONS (5)
  - Atelectasis [None]
  - Hypoxia [None]
  - Alanine aminotransferase increased [None]
  - Infection [None]
  - Aspartate aminotransferase increased [None]

NARRATIVE: CASE EVENT DATE: 20140918
